FAERS Safety Report 16614006 (Version 1)
Quarter: 2019Q3

REPORT INFORMATION
  Report Type: Spontaneous
  Country: OM (occurrence: OM)
  Receive Date: 20190723
  Receipt Date: 20190723
  Transmission Date: 20191004
  Serious: Yes (Other)
  Sender: FDA-Public Use
  Company Number: OM-SA-2019SA197119

PATIENT
  Sex: Female

DRUGS (1)
  1. CLOMIFENE CITRATE [Suspect]
     Active Substance: CLOMIPHENE

REACTIONS (2)
  - Peritoneal haemorrhage [Unknown]
  - Shock [Unknown]
